FAERS Safety Report 24278752 (Version 3)
Quarter: 2024Q3

REPORT INFORMATION
  Report Type: Report from Study
  Country: BE (occurrence: MA)
  Receive Date: 20240903
  Receipt Date: 20240923
  Transmission Date: 20241017
  Serious: Yes (Hospitalization)
  Sender: PFIZER
  Company Number: BE-PFIZER INC-PV202400092581

PATIENT
  Age: 72 Year
  Sex: Male
  Weight: 87 kg

DRUGS (2)
  1. TALAZOPARIB [Suspect]
     Active Substance: TALAZOPARIB
     Indication: Prostate cancer metastatic
     Dosage: 0.35 MG, DAILY
     Route: 048
     Dates: start: 20240601, end: 20240713
  2. XTANDI [Concomitant]
     Active Substance: ENZALUTAMIDE
     Indication: Prostate cancer metastatic
     Dosage: 40 MG, 4X/DAY
     Route: 048
     Dates: start: 20240601, end: 20240713

REACTIONS (1)
  - Cerebrovascular accident [Recovered/Resolved with Sequelae]

NARRATIVE: CASE EVENT DATE: 20240713
